FAERS Safety Report 4554960-9 (Version None)
Quarter: 2004Q4

REPORT INFORMATION
  Report Type: 
  Country: None (occurrence: None)
  Receive Date: 20041222
  Receipt Date: 20041018
  Transmission Date: 20050328
  Serious: Yes (Hospitalization)
  Sender: FDA-Public Use
  Company Number: 209806

PATIENT
  Age: 65 Year
  Sex: Female
  Weight: 46.3 kg

DRUGS (5)
  1. AVASTIN [Suspect]
     Indication: COLORECTAL CANCER METASTATIC
     Dosage: 230 MG, Q2W, INTRAVENOUS
     Route: 042
  2. IRINOTECAN (IRINOTECAN HYDROCHLORIDE) [Concomitant]
  3. 5-FU (FLOUROURACIL) [Concomitant]
  4. LEUCOVORIN CALCIUM [Concomitant]
  5. COUMADIN [Concomitant]

REACTIONS (2)
  - CARDIAC FAILURE CONGESTIVE [None]
  - DYSPNOEA [None]
